FAERS Safety Report 17460212 (Version 1)
Quarter: 2020Q1

REPORT INFORMATION
  Report Type: Spontaneous
  Country: CH (occurrence: CH)
  Receive Date: 20200226
  Receipt Date: 20200226
  Transmission Date: 20200409
  Serious: Yes (Other)
  Sender: FDA-Public Use
  Company Number: CH-TEVA-2020-CH-1189219

PATIENT
  Sex: Female

DRUGS (7)
  1. QUETIAPIN-MEPHA 25MG [Concomitant]
     Indication: TENSION
     Dosage: 25 MG AT NIGHT
     Dates: start: 201806
  2. IMIGRAN [Concomitant]
     Active Substance: SUMATRIPTAN SUCCINATE
  3. QUETIAPIN MEPHA RETARD [Suspect]
     Active Substance: QUETIAPINE
     Indication: TENSION
  4. NOVALGIN 500 MG [Concomitant]
     Dosage: 2 TABLETS
  5. QUETIAPIN MEPHA RETARD [Suspect]
     Active Substance: QUETIAPINE
     Indication: DEPRESSION
     Dosage: 50MG TABLET
     Route: 048
  6. BRINTELLIX [Concomitant]
     Active Substance: VORTIOXETINE HYDROBROMIDE
     Dosage: 1 TABLET
  7. QUETIAPIN-MEPHA 25MG [Concomitant]
     Indication: AGITATION

REACTIONS (8)
  - Sleep disorder [Recovered/Resolved]
  - Hyporesponsive to stimuli [Recovered/Resolved]
  - Palpitations [Recovered/Resolved]
  - Hangover [Recovered/Resolved]
  - Somnolence [Recovered/Resolved]
  - Overdose [Unknown]
  - Disturbance in attention [Recovered/Resolved]
  - Suspected product quality issue [Unknown]
